FAERS Safety Report 8361426-7 (Version None)
Quarter: 2012Q2

REPORT INFORMATION
  Report Type: 
  Country: None (occurrence: None)
  Receive Date: 20120515
  Receipt Date: 20110829
  Transmission Date: 20120825
  Serious: Yes (Other)
  Sender: FDA-Public Use
  Company Number: US-ALEXION-A201101294

PATIENT
  Sex: Female

DRUGS (14)
  1. MELATONIN [Concomitant]
     Dosage: UNK
  2. NEURONTIN [Concomitant]
     Dosage: UNK
  3. VITAMIN B COMPLEX CAP [Concomitant]
     Dosage: UNK
  4. LITHIUM CARBONATE [Suspect]
     Dosage: UNK
  5. AMITRIPTYLINE HCL [Concomitant]
     Dosage: UNK
  6. FLUTICASONE FUROATE [Concomitant]
     Dosage: UNK
  7. FOLIC ACID [Concomitant]
     Dosage: UNK
  8. ASCORBIC ACID [Concomitant]
     Dosage: UNK
  9. ANTIHISTAMINES [Concomitant]
     Dosage: UNK
  10. LEVOXYL [Concomitant]
     Dosage: UNK
  11. SOLIRIS [Suspect]
     Indication: PAROXYSMAL NOCTURNAL HAEMOGLOBINURIA
     Dosage: UNK
     Route: 042
     Dates: start: 20071101
  12. HYDROCODONE BITARTRATE + ACETAMINOPHEN [Concomitant]
     Dosage: UNK
  13. IMITREX [Concomitant]
     Dosage: UNK
  14. ATENOLOL [Concomitant]
     Dosage: UNK

REACTIONS (2)
  - DIZZINESS [None]
  - SYNCOPE [None]
